FAERS Safety Report 22345155 (Version 3)
Quarter: 2023Q2

REPORT INFORMATION
  Report Type: Spontaneous
  Country: US (occurrence: US)
  Receive Date: 20230519
  Receipt Date: 20230619
  Transmission Date: 20230722
  Serious: Yes (Hospitalization)
  Sender: FDA-Public Use
  Company Number: US-RIGEL Pharmaceuticals, INC-2023OLU000024

PATIENT
  Sex: Male
  Weight: 67.188 kg

DRUGS (2)
  1. REZLIDHIA [Suspect]
     Active Substance: OLUTASIDENIB
     Indication: Acute myeloid leukaemia (in remission)
     Dosage: 150 MG, QD
     Route: 048
     Dates: start: 20230328, end: 2023
  2. REZLIDHIA [Suspect]
     Active Substance: OLUTASIDENIB
     Dosage: 150 MG, QD
     Route: 048
     Dates: start: 2023

REACTIONS (7)
  - Illness [Unknown]
  - Anxiety [Unknown]
  - Neck pain [Unknown]
  - Fatigue [Unknown]
  - Rash [Unknown]
  - Nausea [Unknown]
  - Abdominal pain upper [Unknown]

NARRATIVE: CASE EVENT DATE: 20230101
